FAERS Safety Report 16736197 (Version 2)
Quarter: 2020Q4

REPORT INFORMATION
  Report Type: Spontaneous
  Country: US (occurrence: US)
  Receive Date: 20190823
  Receipt Date: 20201203
  Transmission Date: 20210113
  Serious: Yes (Other)
  Sender: FDA-Public Use
  Company Number: US-JNJFOC-20190818876

PATIENT
  Age: 54 Year
  Sex: Female
  Weight: 59.02 kg

DRUGS (6)
  1. CLOBETASOL [Concomitant]
     Active Substance: CLOBETASOL
  2. TREMFYA [Suspect]
     Active Substance: GUSELKUMAB
     Indication: PRODUCT USED FOR UNKNOWN INDICATION
     Route: 065
     Dates: start: 201906
  3. TREMFYA [Suspect]
     Active Substance: GUSELKUMAB
  4. CLONAZEPAM. [Concomitant]
     Active Substance: CLONAZEPAM
  5. ESTRADIOL. [Concomitant]
     Active Substance: ESTRADIOL
  6. MELOXICAM. [Concomitant]
     Active Substance: MELOXICAM

REACTIONS (12)
  - Pain [Not Recovered/Not Resolved]
  - Fatigue [Not Recovered/Not Resolved]
  - Mental impairment [Unknown]
  - Diarrhoea [Unknown]
  - Pruritus [Unknown]
  - Swelling face [Not Recovered/Not Resolved]
  - Visual impairment [Unknown]
  - Herpes zoster [Not Recovered/Not Resolved]
  - Dyspnoea [Unknown]
  - Blister [Unknown]
  - Influenza like illness [Unknown]
  - Malaise [Not Recovered/Not Resolved]
